FAERS Safety Report 24705808 (Version 1)
Quarter: 2024Q4

REPORT INFORMATION
  Report Type: Spontaneous
  Country: US (occurrence: US)
  Receive Date: 20241206
  Receipt Date: 20241206
  Transmission Date: 20250114
  Serious: No
  Sender: BRISTOL-MYERS SQUIBB COMPANY
  Company Number: US-BRISTOL-MYERS SQUIBB COMPANY-2024-190194

PATIENT
  Age: 72 Year
  Sex: Female
  Weight: 55.34 kg

DRUGS (1)
  1. ELIQUIS [Suspect]
     Active Substance: APIXABAN
     Indication: Atrial fibrillation
     Route: 048

REACTIONS (3)
  - Gastrointestinal disorder [Unknown]
  - Bowel movement irregularity [Unknown]
  - Flatulence [Unknown]
